FAERS Safety Report 8784594 (Version 1)
Quarter: 2012Q4

REPORT INFORMATION
  Report Type: Spontaneous
  Country: US (occurrence: None)
  Receive Date: 20120907
  Receipt Date: 20120907
  Transmission Date: 20130627
  Serious: No
  Sender: FDA-Public Use
  Company Number: None

PATIENT
  Age: 64 Year
  Sex: Female
  Weight: 77.11 kg

DRUGS (3)
  1. DIOVAN HCT [Suspect]
     Indication: HYPERTENSION
     Route: 048
  2. METFORMIN [Concomitant]
  3. ACTOS [Concomitant]

REACTIONS (2)
  - Pruritus generalised [None]
  - Skin discolouration [None]
